FAERS Safety Report 21613887 (Version 3)
Quarter: 2022Q4

REPORT INFORMATION
  Report Type: Spontaneous
  Country: US (occurrence: US)
  Receive Date: 20221118
  Receipt Date: 20221209
  Transmission Date: 20230113
  Serious: No
  Sender: FDA-Public Use
  Company Number: US-BAYER-2022A143969

PATIENT
  Sex: Female

DRUGS (1)
  1. CLIMARA [Suspect]
     Active Substance: ESTRADIOL
     Dosage: UNK
     Route: 062
     Dates: start: 202206

REACTIONS (5)
  - Device adhesion issue [None]
  - Product shape issue [None]
  - Incorrect dose administered by product [None]
  - Hot flush [None]
  - Drug ineffective [None]
